FAERS Safety Report 7969310 (Version 7)
Quarter: 2013Q1

REPORT INFORMATION
  Report Type: Report from Study
  Country: US (occurrence: US)
  Receive Date: 20110601
  Receipt Date: 20130118
  Transmission Date: 20140127
  Serious: Yes (Death, Life-Threatening, Hospitalization, Disabling, Other)
  Sender: FDA-Public Use
  Company Number: US-ACTELION-A-US2011-49161

PATIENT
  Age: 74 Year
  Sex: Female

DRUGS (3)
  1. TRACLEER [Suspect]
     Indication: PULMONARY ARTERIAL HYPERTENSION
     Dosage: 125 MG, BID
     Route: 048
     Dates: start: 20090827, end: 20111213
  2. TRACLEER [Suspect]
     Dosage: 62.5 MG, BID
     Route: 048
     Dates: start: 20090616, end: 20090826
  3. COUMADIN [Concomitant]

REACTIONS (24)
  - Hepatic failure [Fatal]
  - Multi-organ failure [Fatal]
  - Gallbladder operation [Unknown]
  - Cellulitis [Unknown]
  - Sepsis [Unknown]
  - Urinary tract infection [Unknown]
  - Thrombocytopenia [Unknown]
  - Aspartate aminotransferase increased [Fatal]
  - Alanine aminotransferase increased [Fatal]
  - Blood alkaline phosphatase increased [Fatal]
  - Blood bilirubin increased [Fatal]
  - Cholecystitis [Unknown]
  - Cholangitis [Unknown]
  - Bacteraemia [Unknown]
  - Enterococcal infection [Unknown]
  - Abdominal pain upper [Unknown]
  - Cholelithiasis [Unknown]
  - Obstruction gastric [Unknown]
  - Cholecystectomy [Unknown]
  - Shunt infection [Recovering/Resolving]
  - Stent placement [Unknown]
  - Dialysis [Unknown]
  - Medical device complication [Recovering/Resolving]
  - Syncope [Recovering/Resolving]
